FAERS Safety Report 7172716-8 (Version None)
Quarter: 2010Q4

REPORT INFORMATION
  Report Type: 
  Country: None (occurrence: None)
  Receive Date: 20101218
  Receipt Date: 20101213
  Transmission Date: 20110411
  Serious: Yes (Life-Threatening, Hospitalization)
  Sender: FDA-Public Use
  Company Number: US-US-EMD SERONO, INC.-7031817

PATIENT
  Sex: Female

DRUGS (1)
  1. REBIF [Suspect]
     Indication: PRODUCT USED FOR UNKNOWN INDICATION
     Route: 058
     Dates: start: 20061103, end: 20101101

REACTIONS (3)
  - INTRACRANIAL ANEURYSM [None]
  - OBSTRUCTIVE AIRWAYS DISORDER [None]
  - UPPER RESPIRATORY TRACT INFECTION [None]
